FAERS Safety Report 12891666 (Version 1)
Quarter: 2016Q4

REPORT INFORMATION
  Report Type: Spontaneous
  Country: DE (occurrence: DE)
  Receive Date: 20161028
  Receipt Date: 20161028
  Transmission Date: 20170207
  Serious: Yes (Other)
  Sender: FDA-Public Use
  Company Number: DE-DRREDDYS-GER/GER/16/0084376

PATIENT
  Age: 27 Year
  Sex: Female

DRUGS (1)
  1. CITALOPRAM [Suspect]
     Active Substance: CITALOPRAM HYDROBROMIDE
     Indication: DEPRESSION
     Route: 048
     Dates: start: 20160109, end: 20160910

REACTIONS (5)
  - Exposure during pregnancy [Unknown]
  - Hypotension [Unknown]
  - Vomiting [Unknown]
  - Gestational diabetes [Unknown]
  - Pre-eclampsia [Unknown]
